FAERS Safety Report 10094492 (Version 1)
Quarter: 2014Q2

REPORT INFORMATION
  Report Type: Spontaneous
  Country: US (occurrence: None)
  Receive Date: 20140421
  Receipt Date: 20140421
  Transmission Date: 20141212
  Serious: Yes (Disabling, Other)
  Sender: FDA-Public Use
  Company Number: None

PATIENT
  Age: 60 Day
  Sex: Female
  Weight: 61.24 kg

DRUGS (3)
  1. Z PACK [Suspect]
     Indication: ANTIBIOTIC THERAPY
  2. Z PACK [Suspect]
     Indication: ANTIBIOTIC THERAPY
  3. Z PACK [Suspect]
     Indication: ANTIBIOTIC THERAPY

REACTIONS (5)
  - Cardiac arrest [None]
  - Urticaria [None]
  - Dyspnoea [None]
  - Swelling [None]
  - Product substitution issue [None]
